FAERS Safety Report 5344088-2 (Version None)
Quarter: 2007Q2

REPORT INFORMATION
  Report Type: 
  Country: None (occurrence: None)
  Receive Date: 20070604
  Receipt Date: 20070531
  Transmission Date: 20071010
  Serious: Yes (Other)
  Sender: FDA-Public Use
  Company Number: B0472232A

PATIENT
  Age: 45 Year
  Sex: Male

DRUGS (1)
  1. CLAVULIN [Suspect]
     Dosage: 1G TWICE PER DAY
     Route: 048
     Dates: start: 20070515, end: 20070516

REACTIONS (2)
  - ABDOMINAL PAIN UPPER [None]
  - CONVULSION [None]
